FAERS Safety Report 4727196-6 (Version None)
Quarter: 2005Q3

REPORT INFORMATION
  Report Type: 
  Country: None (occurrence: None)
  Receive Date: 20050728
  Receipt Date: 20050722
  Transmission Date: 20060218
  Serious: Yes (Hospitalization)
  Sender: FDA-Public Use
  Company Number: 2005CG01284

PATIENT
  Age: 50 Year
  Sex: Female

DRUGS (6)
  1. OMEPRAZOLE [Suspect]
     Route: 048
     Dates: end: 20050318
  2. ONDANSETRON [Suspect]
     Route: 048
     Dates: end: 20050318
  3. DIPRIVAN [Concomitant]
     Route: 042
     Dates: start: 20050315, end: 20050315
  4. MIDAZOLAM HCL [Concomitant]
     Route: 042
     Dates: start: 20050315, end: 20050315
  5. SUFENTA [Concomitant]
     Route: 042
     Dates: start: 20050315, end: 20050315
  6. ACETAMINOPHEN [Concomitant]
     Route: 048

REACTIONS (1)
  - ACUTE GENERALISED EXANTHEMATOUS PUSTULOSIS [None]
